FAERS Safety Report 18901060 (Version 1)
Quarter: 2021Q1

REPORT INFORMATION
  Report Type: Spontaneous
  Country: JP (occurrence: JP)
  Receive Date: 20210216
  Receipt Date: 20210216
  Transmission Date: 20210420
  Serious: Yes (Other)
  Sender: FDA-Public Use
  Company Number: JP-NOVOPROD-784106

PATIENT
  Age: 4 Decade
  Sex: Female
  Weight: 97.3 kg

DRUGS (21)
  1. SEIBULE [Concomitant]
     Active Substance: MIGLITOL
     Indication: TYPE 2 DIABETES MELLITUS
     Dosage: 110MG
     Route: 048
  2. LIVALO [Concomitant]
     Active Substance: PITAVASTATIN CALCIUM
     Indication: DIABETIC NEUROPATHY
     Dosage: 1MG
     Route: 048
  3. CEREKINON [Concomitant]
     Active Substance: TRIMEBUTINE
     Indication: CHRONIC GASTRITIS
     Dosage: 600MG
     Route: 048
  4. NOVAMINE [Concomitant]
     Active Substance: ALANINE\ARGININE\ASPARTIC ACID\GLUTAMIC ACID\GLYCINE\HISTIDINE\ISOLEUCINE\LEUCINE\LYSINE ACETATE\METHIONINE\PHENYLALANINE\PROLINE\SERINE\THREONINE\TRYPTOPHAN\TYROSINE\VALINE
     Indication: CHRONIC GASTRITIS
     Dosage: 20MG
     Route: 048
  5. NEXIUM I.V. [Concomitant]
     Active Substance: ESOMEPRAZOLE SODIUM
     Indication: CEREBRAL INFARCTION
     Dosage: 20MG
     Route: 048
  6. TRESIBA [Suspect]
     Active Substance: INSULIN DEGLUDEC
     Dosage: 16 IU, QW
     Route: 058
     Dates: start: 20200529
  7. TRULICITY [Concomitant]
     Active Substance: DULAGLUTIDE
     Indication: TYPE 2 DIABETES MELLITUS
     Dosage: UNK
     Route: 058
  8. METHYCOBAL [Concomitant]
     Active Substance: METHYLCOBALAMIN
     Indication: TYPE 2 DIABETES MELLITUS
     Dosage: 1500 MICROG
     Route: 048
  9. RISPERDAL [Concomitant]
     Active Substance: RISPERIDONE
     Indication: SCHIZOPHRENIA
     Dosage: 8MG
     Route: 048
  10. METGLUCO [Concomitant]
     Active Substance: METFORMIN HYDROCHLORIDE
     Indication: TYPE 2 DIABETES MELLITUS
     Dosage: 2000MG
     Route: 048
  11. ALLELOCK [Concomitant]
     Active Substance: OLOPATADINE HYDROCHLORIDE
     Indication: DYSLIPIDAEMIA
     Dosage: 10MG
     Route: 048
  12. LEVOTOMIN [LEVOMEPROMAZINE HYDROCHLORIDE] [Concomitant]
     Indication: SCHIZOPHRENIA
     Dosage: 75MG
     Route: 048
  13. BAYASPIRIN [Concomitant]
     Active Substance: ASPIRIN
     Indication: CEREBRAL INFARCTION
     Dosage: 200MG
     Route: 048
  14. AMARYL [Concomitant]
     Active Substance: GLIMEPIRIDE
     Indication: TYPE 2 DIABETES MELLITUS
     Dosage: 3MG
     Route: 048
  15. TETRAMIDE [Concomitant]
     Active Substance: MIANSERIN
     Indication: DEPRESSION
     Dosage: 30MG
     Route: 048
  16. CLOPIDOGREL [Concomitant]
     Active Substance: CLOPIDOGREL BISULFATE
     Indication: CEREBRAL INFARCTION
     Dosage: 75MG
     Route: 048
  17. THEO?DUR [Concomitant]
     Active Substance: THEOPHYLLINE ANHYDROUS
     Indication: ASTHMA
     Dosage: 400MG
     Route: 048
  18. TRESIBA [Suspect]
     Active Substance: INSULIN DEGLUDEC
     Indication: TYPE 2 DIABETES MELLITUS
     Dosage: 16 IU, QW(IRREGULAR ADMINISTRATION)
     Route: 058
     Dates: start: 20170703
  19. TRESIBA [Suspect]
     Active Substance: INSULIN DEGLUDEC
     Dosage: 14 IU, QW
     Route: 058
     Dates: start: 20200501
  20. JARDIANCE [Concomitant]
     Active Substance: EMPAGLIFLOZIN
     Indication: TYPE 2 DIABETES MELLITUS
     Dosage: 10MG
     Route: 048
     Dates: start: 20170206
  21. ACTOS [Concomitant]
     Active Substance: PIOGLITAZONE HYDROCHLORIDE
     Indication: TYPE 2 DIABETES MELLITUS
     Dosage: 30MG
     Route: 048
     Dates: start: 20190902

REACTIONS (10)
  - Pruritus genital [Unknown]
  - Tongue dry [Unknown]
  - Hyperglycaemia [Unknown]
  - Off label use [Unknown]
  - Ketosis [Recovered/Resolved]
  - Hypoglycaemia [Recovered/Resolved]
  - Diabetes mellitus inadequate control [Unknown]
  - Pyrexia [Unknown]
  - Cough [Unknown]
  - Oropharyngeal pain [Unknown]

NARRATIVE: CASE EVENT DATE: 20200501
